FAERS Safety Report 25427740 (Version 2)
Quarter: 2025Q3

REPORT INFORMATION
  Report Type: Spontaneous
  Country: GB (occurrence: GB)
  Receive Date: 20250612
  Receipt Date: 20250708
  Transmission Date: 20251020
  Serious: Yes (Hospitalization, Other)
  Sender: MYLAN
  Company Number: GB-MYLANLABS-2025M1048757

PATIENT
  Sex: Male

DRUGS (2)
  1. CLOZARIL [Suspect]
     Active Substance: CLOZAPINE
     Indication: Schizophrenia
     Dates: start: 20120719, end: 20250602
  2. CLOZARIL [Suspect]
     Active Substance: CLOZAPINE

REACTIONS (3)
  - Chronic obstructive pulmonary disease [Unknown]
  - Thrombocytopenia [Unknown]
  - Product dose omission issue [Unknown]

NARRATIVE: CASE EVENT DATE: 20250603
